FAERS Safety Report 17007110 (Version 1)
Quarter: 2019Q4

REPORT INFORMATION
  Report Type: Spontaneous
  Country: US (occurrence: US)
  Receive Date: 20190926
  Receipt Date: 20190926
  Transmission Date: 20200122
  Serious: Yes (Hospitalization)
  Sender: FDA-Public Use
  Company Number: None

PATIENT
  Age: 22 Year
  Sex: Female
  Weight: 83.5 kg

DRUGS (1)
  1. METHOTREXATE. [Suspect]
     Active Substance: METHOTREXATE
     Dates: end: 20190912

REACTIONS (7)
  - Weight increased [None]
  - Haemodialysis [None]
  - Continuous haemodiafiltration [None]
  - Oedema [None]
  - Drug level increased [None]
  - Creatinine renal clearance decreased [None]
  - Blood creatinine increased [None]

NARRATIVE: CASE EVENT DATE: 20190920
